FAERS Safety Report 8313200-5 (Version None)
Quarter: 2012Q2

REPORT INFORMATION
  Report Type: 
  Country: None (occurrence: None)
  Receive Date: 20120426
  Receipt Date: 20120420
  Transmission Date: 20120825
  Serious: No
  Sender: FDA-Public Use
  Company Number: JP-PFIZER INC-2012041373

PATIENT
  Age: 48 Year
  Sex: Female
  Weight: 36.3 kg

DRUGS (7)
  1. TEMSIROLIMUS [Suspect]
     Indication: METASTATIC RENAL CELL CARCINOMA
     Dosage: 25 MG, UNK
     Route: 041
     Dates: start: 20120213
  2. DECADRON [Concomitant]
     Dosage: 6.6 MG, 1X/DAY
     Route: 042
     Dates: start: 20120213, end: 20120213
  3. FAMOTIDINE [Concomitant]
     Indication: GASTROOESOPHAGEAL REFLUX DISEASE
     Dosage: UNK MG, UNK
     Route: 048
     Dates: start: 20111207
  4. MAGMITT [Concomitant]
     Indication: CONSTIPATION
     Dosage: UNK
     Route: 048
     Dates: start: 20111208
  5. VENA [Concomitant]
     Indication: PROPHYLAXIS
     Dosage: UNK MG, UNK
     Route: 048
     Dates: start: 20120213, end: 20120213
  6. FERROUS CITRATE [Concomitant]
     Indication: IRON DEFICIENCY ANAEMIA
     Dosage: 50 MG, 1X/DAY
     Route: 048
     Dates: start: 20111221
  7. LASIX [Concomitant]
     Indication: OEDEMA
     Dosage: UNK
     Route: 048
     Dates: start: 20120212

REACTIONS (1)
  - RESPIRATORY FAILURE [None]
